FAERS Safety Report 24547582 (Version 1)
Quarter: 2024Q4

REPORT INFORMATION
  Report Type: Spontaneous
  Country: ES (occurrence: ES)
  Receive Date: 20241025
  Receipt Date: 20241025
  Transmission Date: 20250114
  Serious: Yes (Other)
  Sender: AUROBINDO
  Company Number: ES-AEMPS-1577901

PATIENT
  Age: 84 Year
  Sex: Female

DRUGS (13)
  1. SERTRALINE [Suspect]
     Active Substance: SERTRALINE HYDROCHLORIDE
     Indication: Generalised anxiety disorder
     Dosage: UNK (A-DE)
     Route: 048
     Dates: start: 20240919
  2. MOTILIUM [Concomitant]
     Active Substance: DOMPERIDONE
     Indication: Diaphragmatic hernia
     Dosage: 10.0 MILLIGRAM (10.0 MG A-DECOCE  )
     Route: 048
     Dates: start: 20230717
  3. RABEPRAZOLE [Concomitant]
     Active Substance: RABEPRAZOLE
     Indication: Diaphragmatic hernia
     Dosage: 20.0 MILLIGRAM (20.0 MG A-DECE)
     Route: 048
     Dates: start: 20230308
  4. SINEMET [Concomitant]
     Active Substance: CARBIDOPA\LEVODOPA
     Indication: Parkinson^s disease
     Dosage: UNK (1.0 COMP DECOCE)
     Route: 048
     Dates: start: 20221205
  5. DUPHALAC [Concomitant]
     Active Substance: LACTULOSE
     Indication: Constipation
     Dosage: 10.0 GRAM (10.0 G DECOCE)
     Route: 048
     Dates: start: 20231211
  6. TORSEMIDE [Concomitant]
     Active Substance: TORSEMIDE
     Indication: Hypertension
     Dosage: UNK (5.0 MG DE)
     Route: 048
     Dates: start: 20210119
  7. FRESUBIN [Concomitant]
     Active Substance: AMINO ACIDS\DEXTROSE\ELECTROLYTES NOS\SOYBEAN OIL\VITAMINS
     Indication: Palliative care
     Dosage: 6.0 GRAM (6.0 G DECOCE)
     Route: 048
     Dates: start: 20231130
  8. FENTANYL TRANSDERMAL SYSTEM [Concomitant]
     Active Substance: FENTANYL
     Indication: Palliative care
     Dosage: UNK (1.0 PATCH 48 HOURS)
     Route: 065
     Dates: start: 20240814
  9. LEVOTHYROXINE SODIUM [Concomitant]
     Active Substance: LEVOTHYROXINE SODIUM
     Indication: Hypothyroidism
     Dosage: UNK (25.0 MCG A-DE)
     Route: 048
     Dates: start: 20101218
  10. DIAZEPAM [Concomitant]
     Active Substance: DIAZEPAM
     Indication: Palliative care
     Dosage: 2.5 MILLIGRAM (2.5 MG DECOCE)
     Route: 048
     Dates: start: 20240520
  11. MOVICOL [Concomitant]
     Active Substance: POLYETHYLENE GLYCOL 3350\POTASSIUM CHLORIDE\SODIUM BICARBONATE\SODIUM CHLORIDE
     Indication: Constipation
     Dosage: UNK (1.0 ABOUT DECOCE)
     Route: 048
     Dates: start: 20230928
  12. QUETIAPINE [Concomitant]
     Active Substance: QUETIAPINE
     Indication: Senile dementia
     Dosage: UNK (IRREGULAR MG)
     Route: 048
     Dates: start: 20240207
  13. EFFERALGAN [Concomitant]
     Active Substance: ACETAMINOPHEN
     Indication: Palliative care
     Dosage: 1 GRAM (1.0 G DECOCE)
     Route: 048
     Dates: start: 20240827

REACTIONS (1)
  - Hallucination, visual [Recovered/Resolved]

NARRATIVE: CASE EVENT DATE: 20241001
